FAERS Safety Report 9098828 (Version 1)
Quarter: 2013Q1

REPORT INFORMATION
  Report Type: Spontaneous
  Country: FR (occurrence: FR)
  Receive Date: 20130214
  Receipt Date: 20130214
  Transmission Date: 20140127
  Serious: Yes (Death)
  Sender: FDA-Public Use
  Company Number: FR-PFIZER INC-2013058713

PATIENT
  Age: 47 Year
  Sex: Female

DRUGS (1)
  1. ORELOX [Suspect]
     Indication: SINUSITIS
     Dosage: UNK
     Route: 048
     Dates: start: 20130117, end: 20130125

REACTIONS (3)
  - Clostridium difficile colitis [Fatal]
  - Diarrhoea [Fatal]
  - Pyrexia [Fatal]
